FAERS Safety Report 9914844 (Version 2)
Quarter: 2014Q2

REPORT INFORMATION
  Report Type: Report from Study
  Country: JP (occurrence: JP)
  Receive Date: 20140220
  Receipt Date: 20140618
  Transmission Date: 20141212
  Serious: Yes (Other)
  Sender: FDA-Public Use
  Company Number: JP-VERTEX PHARMACEUTICALS INC-2014-000867

PATIENT
  Age: 63 Year
  Sex: Female

DRUGS (11)
  1. VX-950 (TELAPREVIR) [Suspect]
     Indication: CHRONIC HEPATITIS C
     Dosage: 2250 MG, QD
     Route: 048
     Dates: start: 20120626, end: 20120918
  2. PEGINTERFERON ALFA-2B [Suspect]
     Indication: CHRONIC HEPATITIS C
     Dosage: 1.5 ?G/KG, QW
     Route: 058
     Dates: start: 20120626, end: 20120702
  3. PEGINTERFERON ALFA-2B [Suspect]
     Dosage: 1 ?G/KG, QW
     Route: 058
     Dates: start: 20120703, end: 20121204
  4. RIBAVIRIN [Suspect]
     Indication: CHRONIC HEPATITIS C
     Dosage: 600 MG, QD
     Route: 048
     Dates: start: 20120626, end: 20120730
  5. RIBAVIRIN [Suspect]
     Dosage: 400 MG, QD
     Route: 048
     Dates: start: 20120731, end: 20120813
  6. RIBAVIRIN [Suspect]
     Dosage: 200 MG, QD
     Route: 048
     Dates: start: 20120814, end: 20121120
  7. RIBAVIRIN [Suspect]
     Dosage: 400 MG, QD
     Route: 048
     Dates: start: 20121121, end: 20121211
  8. PYRINAZIN [Concomitant]
     Dosage: 0.5 G, QD, PRN
     Route: 048
     Dates: start: 20120627
  9. PRIMPERAN [Concomitant]
     Dosage: 10 MG, QD, PRN
     Route: 042
     Dates: start: 20120629, end: 20120629
  10. KENALOG [Concomitant]
     Dosage: Q.S. / DAY
     Route: 051
     Dates: start: 20120709
  11. KENALOG [Concomitant]
     Dosage: UNK
     Route: 051

REACTIONS (1)
  - Anaemia [Recovering/Resolving]
